FAERS Safety Report 4787079-2 (Version None)
Quarter: 2005Q4

REPORT INFORMATION
  Report Type: 
  Country: None (occurrence: None)
  Receive Date: 20051004
  Receipt Date: 20050830
  Transmission Date: 20060501
  Serious: Yes (Hospitalization, Other)
  Sender: FDA-Public Use
  Company Number: 2005AP04686

PATIENT
  Age: 14584 Day
  Sex: Female
  Weight: 48 kg

DRUGS (2)
  1. ANAPEINE [Suspect]
     Indication: EPIDURAL ANAESTHESIA
     Dosage: 4 ML/H X 25 HOURS
     Route: 008
     Dates: start: 20050401, end: 20050402
  2. RIZE [Concomitant]

REACTIONS (11)
  - BLISTER [None]
  - CELLULITIS [None]
  - DECUBITUS ULCER [None]
  - DERMATITIS CONTACT [None]
  - ERYTHEMA [None]
  - HERPES SIMPLEX [None]
  - HERPES ZOSTER [None]
  - KELOID SCAR [None]
  - PAIN [None]
  - PANNICULITIS [None]
  - PRURITUS [None]
